FAERS Safety Report 11750863 (Version 1)
Quarter: 2015Q4

REPORT INFORMATION
  Report Type: Spontaneous
  Country: JP (occurrence: JP)
  Receive Date: 20151118
  Receipt Date: 20151118
  Transmission Date: 20160304
  Serious: Yes (Hospitalization, Other)
  Sender: FDA-Public Use
  Company Number: JP-BAYER-2015-247722

PATIENT
  Age: 40 Year
  Sex: Female

DRUGS (2)
  1. ACETYLSALICYLIC ACID({=100 MG) [Suspect]
     Active Substance: ASPIRIN
     Dosage: UNK
     Route: 048
  2. HEPARIN [Concomitant]
     Active Substance: HEPARIN SODIUM
     Dosage: UNK

REACTIONS (8)
  - Hepatic enzyme increased [None]
  - Abdominal pain upper [None]
  - Platelet count decreased [None]
  - HELLP syndrome [None]
  - Maternal exposure during pregnancy [None]
  - Haematuria [None]
  - Blood pressure increased [None]
  - Back pain [None]
